FAERS Safety Report 4519523-X (Version None)
Quarter: 2004Q4

REPORT INFORMATION
  Report Type: 
  Country: None (occurrence: None)
  Receive Date: 20041202
  Receipt Date: 20041125
  Transmission Date: 20050328
  Serious: Yes (Hospitalization, Other)
  Sender: FDA-Public Use
  Company Number: 2004-11-1568

PATIENT
  Age: 52 Year
  Sex: Male
  Weight: 93 kg

DRUGS (5)
  1. PEG-INTRON [Suspect]
     Indication: HEPATITIS C
     Dosage: 120-39 MCG
     Dates: start: 20040407, end: 20041118
  2. PEG-INTRON [Suspect]
     Indication: HEPATITIS C
     Dosage: 120-39 MCG
     Dates: start: 20040407
  3. PEG-INTRON [Suspect]
     Indication: HEPATITIS C
     Dosage: 120-39 MCG
     Dates: start: 20041118
  4. RIBAVIRIN [Suspect]
     Indication: HEPATITIS C
     Dosage: ORAL
     Route: 048
     Dates: start: 20040407, end: 20041122
  5. STILNOX [Concomitant]

REACTIONS (11)
  - ASCITES [None]
  - BLOOD ALBUMIN DECREASED [None]
  - BLOOD BILIRUBIN INCREASED [None]
  - BLOOD GLUCOSE INCREASED [None]
  - CHEST PAIN [None]
  - CONFUSIONAL STATE [None]
  - DEPRESSION [None]
  - DIARRHOEA [None]
  - FOLLICULITIS [None]
  - HAEMOGLOBIN DECREASED [None]
  - JOINT SWELLING [None]
